FAERS Safety Report 21378408 (Version 1)
Quarter: 2022Q3

REPORT INFORMATION
  Report Type: Spontaneous
  Country: DE (occurrence: DE)
  Receive Date: 20220927
  Receipt Date: 20220927
  Transmission Date: 20221027
  Serious: Yes (Hospitalization)
  Sender: FDA-Public Use
  Company Number: DE-NOVARTISPH-NVSC2022DE211060

PATIENT
  Age: 75 Year
  Sex: Female

DRUGS (6)
  1. SULFAMETHOXAZOLE\TRIMETHOPRIM [Suspect]
     Active Substance: SULFAMETHOXAZOLE\TRIMETHOPRIM
     Indication: Product used for unknown indication
     Dosage: UNK (800|160 MG, NACH SCHEMA)
     Route: 048
  2. CANDESARTAN [Suspect]
     Active Substance: CANDESARTAN
     Indication: Product used for unknown indication
     Dosage: 16 MG, QD (1-0-0-0)
     Route: 048
  3. TORSEMIDE [Suspect]
     Active Substance: TORSEMIDE
     Indication: Product used for unknown indication
     Dosage: 5 MG, QD (2-0-0-0)
     Route: 048
  4. ATORVASTATIN [Concomitant]
     Active Substance: ATORVASTATIN
     Indication: Product used for unknown indication
     Dosage: 20 MG, QD ( 0-0-1-0)
     Route: 048
  5. LERCANIDIPINE [Concomitant]
     Active Substance: LERCANIDIPINE
     Indication: Product used for unknown indication
     Dosage: 10 MG, BID ( 1-0-1-0)
     Route: 048
  6. KALIUMIODID BC [Concomitant]
     Indication: Product used for unknown indication
     Dosage: 0.131 MG, QD ( 1-0-0-0)
     Route: 048

REACTIONS (8)
  - Micturition urgency [Unknown]
  - Abdominal tenderness [Unknown]
  - Muscular weakness [Unknown]
  - Cystitis [Unknown]
  - Acute kidney injury [Unknown]
  - Renal impairment [Unknown]
  - Product prescribing error [Unknown]
  - Dysuria [Unknown]

NARRATIVE: CASE EVENT DATE: 20210517
